FAERS Safety Report 8565097 (Version 3)
Quarter: 2017Q2

REPORT INFORMATION
  Report Type: Report from Study
  Country: US (occurrence: US)
  Receive Date: 20120516
  Receipt Date: 20170401
  Transmission Date: 20170830
  Serious: Yes (Other)
  Sender: FDA-Public Use
  Company Number: US-ALEXION-A201200539

PATIENT
  Sex: Female
  Weight: 90 kg

DRUGS (2)
  1. SOLIRIS [Suspect]
     Active Substance: ECULIZUMAB
     Dosage: 900 MG Q11D
     Route: 042
  2. SOLIRIS [Suspect]
     Active Substance: ECULIZUMAB
     Indication: PAROXYSMAL NOCTURNAL HAEMOGLOBINURIA
     Dosage: 900 MG, Q2W
     Route: 042
     Dates: start: 201102, end: 2012

REACTIONS (13)
  - Headache [Recovered/Resolved]
  - Product preparation error [Unknown]
  - Adverse drug reaction [Unknown]
  - Fatigue [Recovering/Resolving]
  - Drug hypersensitivity [Unknown]
  - Haemolysis [Recovered/Resolved]
  - Pain in extremity [Recovered/Resolved]
  - Pain in extremity [Unknown]
  - Incorrect drug administration duration [Unknown]
  - Oropharyngeal pain [Unknown]
  - Pruritus [Unknown]
  - Hypersensitivity [Unknown]
  - Burning sensation [Recovered/Resolved]
